FAERS Safety Report 16941193 (Version 1)
Quarter: 2019Q4

REPORT INFORMATION
  Report Type: Other
  Country: DE (occurrence: DE)
  Receive Date: 20191021
  Receipt Date: 20191021
  Transmission Date: 20200122
  Serious: Yes (Congenital Anomaly, Other)
  Sender: FDA-Public Use
  Company Number: DE-COVIS PHARMA B.V.-2019COV00253

PATIENT
  Age: 1 Day
  Sex: Female
  Weight: 2 kg

DRUGS (8)
  1. PROGESTERONE. [Concomitant]
     Active Substance: PROGESTERONE
     Dosage: 100 MG, 1X/DAY
     Route: 064
     Dates: start: 20180619, end: 20180810
  2. VIANI [Concomitant]
     Active Substance: FLUTICASONE PROPIONATE\SALMETEROL XINAFOATE
     Dosage: UNK
     Route: 064
     Dates: start: 20180619, end: 20180808
  3. LEVOTHYROXINE. [Concomitant]
     Active Substance: LEVOTHYROXINE
     Dosage: 37.5 ?G, 1X/DAY
     Route: 064
     Dates: start: 20180619, end: 20190409
  4. AERODUR [Concomitant]
     Dosage: UNK, AS NEEDED
     Route: 064
  5. SALBUHEXAL [Concomitant]
     Active Substance: ALBUTEROL
     Dosage: UNK, AS NEEDED
     Route: 064
  6. NOVOPULMON [Suspect]
     Active Substance: BUDESONIDE
     Dosage: 0.8 MG, 2X/DAY
     Route: 064
     Dates: start: 20180815, end: 20190409
  7. SEREVENT DISKUS [Concomitant]
     Active Substance: SALMETEROL XINAFOATE
     Dosage: 50 ?G, 2X/DAY
     Route: 064
     Dates: start: 20181004, end: 20190409
  8. ALVESCO [Suspect]
     Active Substance: CICLESONIDE
     Dosage: 160 ?G, 1X/DAY
     Route: 064
     Dates: start: 20180619, end: 20180814

REACTIONS (5)
  - Small for dates baby [Recovering/Resolving]
  - Patent ductus arteriosus [Recovering/Resolving]
  - Ventricular septal defect [Not Recovered/Not Resolved]
  - Atrial septal defect [Recovering/Resolving]
  - Foetal exposure during pregnancy [Unknown]

NARRATIVE: CASE EVENT DATE: 20190409
